FAERS Safety Report 18752366 (Version 1)
Quarter: 2021Q1

REPORT INFORMATION
  Report Type: Spontaneous
  Country: US (occurrence: US)
  Receive Date: 20210118
  Receipt Date: 20210118
  Transmission Date: 20210419
  Serious: No
  Sender: FDA-Public Use
  Company Number: US-FOUNDATIONCONSUMERHC-2020-US-025291

PATIENT
  Age: 18 Year
  Sex: Female

DRUGS (1)
  1. PLAN B ONE?STEP [Suspect]
     Active Substance: LEVONORGESTREL
     Indication: POST COITAL CONTRACEPTION
     Dosage: 1.5MG AS A SINGLE DOSE
     Route: 048
     Dates: start: 20201208, end: 20201208

REACTIONS (7)
  - Urogenital haemorrhage [Recovered/Resolved]
  - Nausea [Recovered/Resolved]
  - Pelvic pain [Recovered/Resolved]
  - Urine abnormality [Recovered/Resolved]
  - Urine odour abnormal [Recovered/Resolved]
  - Somnolence [Recovered/Resolved]
  - Dizziness [Recovered/Resolved]

NARRATIVE: CASE EVENT DATE: 20201209
